FAERS Safety Report 4393955-5 (Version None)
Quarter: 2004Q3

REPORT INFORMATION
  Report Type: 
  Country: None (occurrence: None)
  Receive Date: 20040701
  Receipt Date: 20040624
  Transmission Date: 20050211
  Serious: Yes (Hospitalization, Other)
  Sender: FDA-Public Use
  Company Number: 2004-06-1060

PATIENT
  Age: 56 Year
  Sex: Female

DRUGS (5)
  1. REBETOL [Suspect]
     Indication: HEPATITIS C
     Dosage: 600 - QD  ORAL
     Route: 048
     Dates: start: 20030905
  2. INTRON A [Suspect]
     Indication: HEPATITIS C
     Dosage: SEE IMAGE
     Route: 030
     Dates: start: 20030905, end: 20030918
  3. INTRON A [Suspect]
     Indication: HEPATITIS C
     Dosage: SEE IMAGE
     Route: 030
     Dates: start: 20030905
  4. INTRON A [Suspect]
     Indication: HEPATITIS C
     Dosage: SEE IMAGE
     Route: 030
     Dates: start: 20030919
  5. INTERFERON HUMAN INJECTABLE [Suspect]
     Indication: HEPATITIS C
     Dosage: 3  MU TIW

REACTIONS (5)
  - ANAEMIA [None]
  - DYSPNOEA EXERTIONAL [None]
  - PYREXIA [None]
  - RENAL ABSCESS [None]
  - THERAPEUTIC RESPONSE DECREASED [None]
